FAERS Safety Report 18767581 (Version 1)
Quarter: 2021Q1

REPORT INFORMATION
  Report Type: Spontaneous
  Country: US (occurrence: US)
  Receive Date: 20210120
  Receipt Date: 20210120
  Transmission Date: 20210419
  Serious: Yes (Death)
  Sender: FDA-Public Use
  Company Number: None

PATIENT
  Age: 65 Year
  Sex: Female

DRUGS (11)
  1. ADEMPAS [Suspect]
     Active Substance: RIOCIGUAT
     Indication: PULMONARY ARTERIAL HYPERTENSION
     Route: 048
     Dates: start: 20200115, end: 202012
  2. OPSUMIT [Concomitant]
     Active Substance: MACITENTAN
  3. ADEMPAS [Concomitant]
     Active Substance: RIOCIGUAT
  4. TORSEMIDE. [Concomitant]
     Active Substance: TORSEMIDE
  5. POTASSIUM CHLORIDE. [Concomitant]
     Active Substance: POTASSIUM CHLORIDE
  6. ALLOPURINOL. [Concomitant]
     Active Substance: ALLOPURINOL
  7. COLCHICINE. [Concomitant]
     Active Substance: COLCHICINE
  8. VENTOLIN HFA [Concomitant]
     Active Substance: ALBUTEROL SULFATE
  9. SPIRONOLACTONE. [Concomitant]
     Active Substance: SPIRONOLACTONE
  10. WARFARIN [Concomitant]
     Active Substance: WARFARIN
  11. METOPROLOL. [Concomitant]
     Active Substance: METOPROLOL

REACTIONS (11)
  - Aspiration [None]
  - Diabetes mellitus [None]
  - Sepsis [None]
  - Haematemesis [None]
  - Diabetic ketoacidosis [None]
  - Atrial fibrillation [None]
  - Hypotension [None]
  - Ageusia [None]
  - Shock [None]
  - Acute kidney injury [None]
  - Ileus [None]

NARRATIVE: CASE EVENT DATE: 20201210
